FAERS Safety Report 12455203 (Version 1)
Quarter: 2016Q2

REPORT INFORMATION
  Report Type: Spontaneous
  Country: BR (occurrence: BR)
  Receive Date: 20160610
  Receipt Date: 20160610
  Transmission Date: 20160815
  Serious: Yes (Other)
  Sender: FDA-Public Use
  Company Number: BR-JNJFOC-20151211013

PATIENT
  Age: 34 Year
  Sex: Female

DRUGS (4)
  1. REMICADE [Suspect]
     Active Substance: INFLIXIMAB
     Indication: CROHN^S DISEASE
     Dosage: CONFLICTINGLY ALSO REPORTED AS JAN-2015
     Route: 042
     Dates: start: 201601
  2. REMICADE [Suspect]
     Active Substance: INFLIXIMAB
     Indication: CROHN^S DISEASE
     Route: 042
     Dates: start: 2014
  3. REMICADE [Suspect]
     Active Substance: INFLIXIMAB
     Indication: CROHN^S DISEASE
     Route: 042
     Dates: start: 20151110
  4. AZATHIOPRINE. [Concomitant]
     Active Substance: AZATHIOPRINE
     Route: 065

REACTIONS (7)
  - Arthralgia [Recovering/Resolving]
  - Tuberculosis [Not Recovered/Not Resolved]
  - Drug ineffective [Recovering/Resolving]
  - Off label use [Unknown]
  - Musculoskeletal stiffness [Recovering/Resolving]
  - Crohn^s disease [Recovering/Resolving]
  - Product use issue [Unknown]

NARRATIVE: CASE EVENT DATE: 201511
